FAERS Safety Report 21822041 (Version 1)
Quarter: 2023Q1

REPORT INFORMATION
  Report Type: Spontaneous
  Country: US (occurrence: US)
  Receive Date: 20230105
  Receipt Date: 20230105
  Transmission Date: 20230417
  Serious: Yes (Hospitalization, Other)
  Sender: FDA-Public Use
  Company Number: US-BRISTOL-MYERS SQUIBB COMPANY-2023-001522

PATIENT
  Age: 80 Year
  Sex: Female
  Weight: 73.94 kg

DRUGS (1)
  1. REVLIMID [Suspect]
     Active Substance: LENALIDOMIDE
     Indication: Plasma cell myeloma
     Dosage: 1QD21DON7DOFF
     Route: 048
     Dates: end: 20221226

REACTIONS (3)
  - Hyperkalaemia [Unknown]
  - Organ failure [Unknown]
  - Renal disorder [Unknown]
